FAERS Safety Report 8342395-2 (Version None)
Quarter: 2012Q2

REPORT INFORMATION
  Report Type: 
  Country: None (occurrence: None)
  Receive Date: 20120508
  Receipt Date: 20120425
  Transmission Date: 20120825
  Serious: No
  Sender: FDA-Public Use
  Company Number: US-BIOGENIDEC-2011BI011551

PATIENT
  Sex: Female

DRUGS (4)
  1. AVONEX [Concomitant]
     Indication: MULTIPLE SCLEROSIS
     Route: 030
     Dates: start: 19960623
  2. AVONEX [Concomitant]
     Route: 030
  3. AVONEX [Concomitant]
     Route: 030
     Dates: start: 20091101
  4. TYSABRI [Suspect]
     Indication: MULTIPLE SCLEROSIS
     Route: 042
     Dates: start: 20091006

REACTIONS (6)
  - FACIAL PAIN [None]
  - URINARY RETENTION [None]
  - SCOLIOSIS [None]
  - SPINAL COLUMN STENOSIS [None]
  - VAGINAL INFECTION [None]
  - URINARY TRACT INFECTION [None]
